FAERS Safety Report 7618961-6 (Version None)
Quarter: 2011Q3

REPORT INFORMATION
  Report Type: 
  Country: None (occurrence: None)
  Receive Date: 20110718
  Receipt Date: 20110713
  Transmission Date: 20111222
  Serious: Yes (Hospitalization, Other)
  Sender: FDA-Public Use
  Company Number: JP-PFIZER INC-2011136016

PATIENT
  Age: 87 Year
  Sex: Female
  Weight: 42 kg

DRUGS (4)
  1. METHYCOBAL [Concomitant]
     Dosage: UNK
     Route: 048
     Dates: start: 20110520, end: 20110526
  2. LOXONIN [Concomitant]
     Dosage: UNK
     Route: 048
     Dates: start: 20110520, end: 20110526
  3. LYRICA [Suspect]
     Indication: POST HERPETIC NEURALGIA
     Dosage: 75 MG, 2X/DAY
     Route: 048
     Dates: start: 20110524, end: 20110526
  4. VALTREX [Concomitant]
     Dosage: UNK
     Route: 048
     Dates: start: 20110520, end: 20110526

REACTIONS (1)
  - ALTERED STATE OF CONSCIOUSNESS [None]
